FAERS Safety Report 14899133 (Version 1)
Quarter: 2018Q2

REPORT INFORMATION
  Report Type: Report from Study
  Country: MZ (occurrence: MZ)
  Receive Date: 20180516
  Receipt Date: 20180516
  Transmission Date: 20180711
  Serious: Yes (Other)
  Sender: FDA-Public Use
  Company Number: MZ-HETERO CORPORATE-HET2018MZ00411

PATIENT
  Age: 23 Year
  Sex: Female

DRUGS (5)
  1. ISENTRESS [Suspect]
     Active Substance: RALTEGRAVIR POTASSIUM
     Indication: HIV INFECTION
     Dosage: 600 MG, QD
     Route: 048
     Dates: start: 20170210
  2. ISONIAZID W/RIFAMPICIN [Concomitant]
     Active Substance: ISONIAZID\RIFAMPIN
     Dosage: 150 MG, QD, 4 TABLETS
     Dates: start: 20170326
  3. TENOFOVIR  + LAMIVUDINE [Suspect]
     Active Substance: LAMIVUDINE\TENOFOVIR
     Indication: HIV INFECTION
     Dosage: 800 MG, QD
     Route: 048
     Dates: start: 20170210
  4. COTRIMOXAZOLE [Concomitant]
     Active Substance: SULFAMETHOXAZOLE\TRIMETHOPRIM
     Indication: PRODUCT USED FOR UNKNOWN INDICATION
     Dosage: 480 MG, QD
     Route: 065
     Dates: start: 20170126
  5. ISONIAZID W/RIFAMPICIN [Concomitant]
     Active Substance: ISONIAZID\RIFAMPIN
     Indication: PRODUCT USED FOR UNKNOWN INDICATION
     Dosage: 75 MG, QD, 4 TABLETS
     Dates: start: 20170326

REACTIONS (1)
  - Abortion induced [Unknown]
